FAERS Safety Report 6276999-8 (Version None)
Quarter: 2009Q3

REPORT INFORMATION
  Report Type: 
  Country: None (occurrence: None)
  Receive Date: 20090722
  Receipt Date: 20081117
  Transmission Date: 20100115
  Serious: No
  Sender: FDA-Public Use
  Company Number: US-BRISTOL-MYERS SQUIBB COMPANY-14409163

PATIENT
  Age: 47 Year
  Sex: Male
  Weight: 150 kg

DRUGS (2)
  1. COUMADIN [Suspect]
     Indication: INTRACARDIAC THROMBUS
     Dosage: 10MG ON 10NOV08 OR 11NOV08;15MG ON 12NOV08;10MG ON 13NOV08
     Dates: start: 20081101, end: 20081101
  2. ASPIRIN [Concomitant]

REACTIONS (6)
  - ANGER [None]
  - DISORIENTATION [None]
  - DIZZINESS POSTURAL [None]
  - DYSGEUSIA [None]
  - FEELING ABNORMAL [None]
  - HEADACHE [None]
